FAERS Safety Report 12394232 (Version 2)
Quarter: 2016Q2

REPORT INFORMATION
  Report Type: Spontaneous
  Country: DE (occurrence: DE)
  Receive Date: 20160523
  Receipt Date: 20160530
  Transmission Date: 20160815
  Serious: Yes (Hospitalization, Other)
  Sender: FDA-Public Use
  Company Number: DE-PFIZER INC-2016263632

PATIENT
  Age: 60 Year
  Sex: Male

DRUGS (6)
  1. SUTENT [Suspect]
     Active Substance: SUNITINIB MALATE
     Indication: METASTATIC RENAL CELL CARCINOMA
     Dosage: 50 MG, ACCORDING TO 2/1 SCHEME
     Dates: start: 201411
  2. SUTENT [Suspect]
     Active Substance: SUNITINIB MALATE
     Dosage: 37.5 MG/D, ACCORDING TO 2/1 SCHEME
     Dates: start: 201503, end: 201503
  3. SUTENT [Suspect]
     Active Substance: SUNITINIB MALATE
     Dosage: 50 MG, ACCORDING TO 2/1 SCHEME
     Dates: start: 201503, end: 201602
  4. SUTENT [Suspect]
     Active Substance: SUNITINIB MALATE
     Dosage: 25 MG/D, ACCORDING TO 2/1 SCHEME
     Dates: start: 201501, end: 201502
  5. CLADRIBINE. [Concomitant]
     Active Substance: CLADRIBINE
     Indication: HAIRY CELL LEUKAEMIA
     Dosage: 10 MG, CYCLIC (FOR 5 DAYS)
     Dates: start: 201501
  6. SUTENT [Suspect]
     Active Substance: SUNITINIB MALATE
     Dosage: 25 MG, DAILY, ACCORDING TO 2/1 SCHEME
     Dates: start: 201502

REACTIONS (10)
  - Thrombocytopenia [Unknown]
  - Pancytopenia [Unknown]
  - Hypothyroidism [Unknown]
  - Neutropenia [Unknown]
  - Cardiac failure [Recovering/Resolving]
  - Pleural effusion [Recovering/Resolving]
  - Hypertension [Unknown]
  - Aortic valve incompetence [Recovering/Resolving]
  - Pneumonia [Recovering/Resolving]
  - General physical health deterioration [Recovering/Resolving]

NARRATIVE: CASE EVENT DATE: 201501
